FAERS Safety Report 19307119 (Version 1)
Quarter: 2021Q2

REPORT INFORMATION
  Report Type: Report from Study
  Country: US (occurrence: US)
  Receive Date: 20210526
  Receipt Date: 20210526
  Transmission Date: 20210717
  Serious: Yes (Hospitalization)
  Sender: FDA-Public Use
  Company Number: US-GILEAD-2021-0526393

PATIENT
  Age: 9 Year
  Sex: Male

DRUGS (30)
  1. HEPARIN LOCK FLUSH [Concomitant]
     Active Substance: HEPARIN SODIUM
  2. PULMICORT TURBUHALER [Concomitant]
     Active Substance: BUDESONIDE
  3. MONTELUKAST SODIUM. [Concomitant]
     Active Substance: MONTELUKAST SODIUM
  4. VITAMIN D3 [Concomitant]
     Active Substance: CHOLECALCIFEROL
  5. FLUTICASONE PROPIONATE. [Concomitant]
     Active Substance: FLUTICASONE PROPIONATE
  6. ALBUTEROL SULFATE HFA [Concomitant]
     Active Substance: ALBUTEROL SULFATE
  7. CEFAZOLIN [Concomitant]
     Active Substance: CEFAZOLIN
  8. PRILOSEC [Concomitant]
     Active Substance: OMEPRAZOLE MAGNESIUM
  9. BETHKIS [Concomitant]
     Active Substance: TOBRAMYCIN
  10. ZENPEP [Concomitant]
     Active Substance: PANCRELIPASE AMYLASE\PANCRELIPASE LIPASE\PANCRELIPASE PROTEASE
  11. ZYRTEC [Concomitant]
     Active Substance: CETIRIZINE HYDROCHLORIDE
  12. PANCRELIPASE. [Concomitant]
     Active Substance: PANCRELIPASE
  13. FLOVENT HFA [Concomitant]
     Active Substance: FLUTICASONE PROPIONATE
  14. VITAMIN A [RETINOL] [Concomitant]
     Active Substance: RETINOL
  15. MULTIVITAMINS [VITAMINS NOS] [Concomitant]
     Active Substance: VITAMINS
  16. ZYRTEC [Concomitant]
     Active Substance: CETIRIZINE HYDROCHLORIDE
  17. POLYETHYLENE GLYCOL [MACROGOL] [Concomitant]
     Active Substance: POLYETHYLENE GLYCOLS
  18. PROVENTIL [Concomitant]
     Active Substance: ALBUTEROL
  19. AZTREONAM LYSINE [Suspect]
     Active Substance: AZTREONAM LYSINE
     Indication: CYSTIC FIBROSIS LUNG
     Dosage: 75 MG, TID
     Route: 055
  20. VITAMIN E NICOTINATE [Concomitant]
  21. SODIUM CHLORIDE. [Concomitant]
     Active Substance: SODIUM CHLORIDE
  22. MIRALAX [Concomitant]
     Active Substance: POLYETHYLENE GLYCOL 3350
  23. VENTOLIN HFA [Concomitant]
     Active Substance: ALBUTEROL SULFATE
  24. SINGULAIR [Concomitant]
     Active Substance: MONTELUKAST SODIUM
  25. TENEX [Concomitant]
     Active Substance: GUANFACINE HYDROCHLORIDE
  26. PULMOZYME [Concomitant]
     Active Substance: DORNASE ALFA
  27. KALYDECO [Concomitant]
     Active Substance: IVACAFTOR
  28. MELATONIN [Concomitant]
     Active Substance: MELATONIN
  29. OMEPRAZOLE. [Concomitant]
     Active Substance: OMEPRAZOLE
  30. AQUADEKS PEDIATRIC LIQUID [Concomitant]
     Active Substance: MINERALS\VITAMINS

REACTIONS (5)
  - Child neglect [Unknown]
  - Infection [Unknown]
  - Hypophagia [Not Recovered/Not Resolved]
  - Weight decreased [Unknown]
  - Pulmonary function test decreased [Unknown]
